FAERS Safety Report 6731359-8 (Version None)
Quarter: 2010Q2

REPORT INFORMATION
  Report Type: 
  Country: None (occurrence: None)
  Receive Date: 20100517
  Receipt Date: 20100517
  Transmission Date: 20101027
  Serious: Yes (Death)
  Sender: FDA-Public Use
  Company Number: None

PATIENT
  Age: 84 Year
  Sex: Female
  Weight: 51.4 kg

DRUGS (11)
  1. GASTROGRAFIN [Suspect]
     Indication: DIVERTICULITIS
     Dosage: 30ML ONCE PO
     Route: 048
     Dates: start: 20100510, end: 20100510
  2. ASPIRIN [Concomitant]
  3. CLOPIDOGREL [Concomitant]
  4. DOCUSATE [Concomitant]
  5. ESOMEPRAZOLE [Concomitant]
  6. LEVOTHYROXINE SODIUM [Concomitant]
  7. LISINOPRIL [Concomitant]
  8. METOPROLOL TARTRATE [Concomitant]
  9. MORPHINE [Concomitant]
  10. SOTALOL HCL [Concomitant]
  11. HEPARIN SODIUM [Concomitant]

REACTIONS (4)
  - CARDIO-RESPIRATORY ARREST [None]
  - HEART RATE DECREASED [None]
  - POSTURE ABNORMAL [None]
  - UNRESPONSIVE TO STIMULI [None]
